FAERS Safety Report 19389005 (Version 1)
Quarter: 2021Q2

REPORT INFORMATION
  Report Type: Spontaneous
  Country: US (occurrence: US)
  Receive Date: 20210607
  Receipt Date: 20210607
  Transmission Date: 20210717
  Serious: No
  Sender: FDA-Public Use
  Company Number: US-FDC LIMITED-2021RIS00006

PATIENT
  Age: 71 Year
  Sex: Female

DRUGS (10)
  1. TIMOLOL. [Suspect]
     Active Substance: TIMOLOL
     Indication: GLAUCOMA
     Dosage: UNK
     Dates: start: 20190611, end: 20190719
  2. NP THYROID [Suspect]
     Active Substance: LEVOTHYROXINE\LIOTHYRONINE
     Dosage: 60 MG, 1X/DAY
     Route: 048
     Dates: start: 20190418, end: 20190418
  3. NP THYROID [Suspect]
     Active Substance: LEVOTHYROXINE\LIOTHYRONINE
     Dosage: 30 MG, 1X/DAY
     Route: 048
     Dates: start: 20190419, end: 201906
  4. NP THYROID [Suspect]
     Active Substance: LEVOTHYROXINE\LIOTHYRONINE
     Indication: HYPOTHYROIDISM
     Dosage: 90 MG, 1X/DAY
     Route: 048
     Dates: start: 201312, end: 20190416
  5. NP THYROID [Suspect]
     Active Substance: LEVOTHYROXINE\LIOTHYRONINE
     Dosage: 75 MG, 1X/DAY
     Route: 048
     Dates: start: 201906
  6. ASHWAGANDHA [Concomitant]
     Active Substance: HERBALS
  7. DORZOLAMIDE [Concomitant]
     Active Substance: DORZOLAMIDE
  8. NP THYROID [Suspect]
     Active Substance: LEVOTHYROXINE\LIOTHYRONINE
     Dosage: 45 MG, 1X/DAY
     Route: 048
     Dates: start: 201906, end: 201906
  9. NP THYROID [Suspect]
     Active Substance: LEVOTHYROXINE\LIOTHYRONINE
     Dosage: 75 MG, 1X/DAY
     Route: 048
     Dates: start: 20190417, end: 20190417
  10. LATANOPROST. [Concomitant]
     Active Substance: LATANOPROST

REACTIONS (1)
  - Blood pressure fluctuation [Not Recovered/Not Resolved]

NARRATIVE: CASE EVENT DATE: 201906
